FAERS Safety Report 11032732 (Version 1)
Quarter: 2015Q2

REPORT INFORMATION
  Report Type: Spontaneous
  Country: CA (occurrence: CA)
  Receive Date: 20150415
  Receipt Date: 20150415
  Transmission Date: 20150821
  Serious: Yes (Other)
  Sender: FDA-Public Use
  Company Number: CA-TEVA-554396ACC

PATIENT
  Sex: Male
  Weight: 108.96 kg

DRUGS (1)
  1. OLANZAPINE ODT [Suspect]
     Active Substance: OLANZAPINE
     Indication: SCHIZOPHRENIA
     Route: 048

REACTIONS (2)
  - Joint swelling [Recovered/Resolved]
  - Product substitution issue [Recovered/Resolved]
